FAERS Safety Report 8265885-X (Version None)
Quarter: 2012Q2

REPORT INFORMATION
  Report Type: 
  Country: None (occurrence: None)
  Receive Date: 20120406
  Receipt Date: 20120322
  Transmission Date: 20120825
  Serious: Yes (Other)
  Sender: FDA-Public Use
  Company Number: JP-GLAXOSMITHKLINE-B0791654A

PATIENT
  Sex: Female

DRUGS (2)
  1. VALTREX [Suspect]
     Indication: HERPES OPHTHALMIC
     Dosage: 1000MG THREE TIMES PER DAY
     Route: 048
     Dates: start: 20120319
  2. ZOVIRAX [Suspect]
     Indication: HERPES OPHTHALMIC
     Dosage: 800MG PER DAY
     Route: 048

REACTIONS (8)
  - DIZZINESS [None]
  - DEPRESSED LEVEL OF CONSCIOUSNESS [None]
  - FEELING ABNORMAL [None]
  - DYSARTHRIA [None]
  - BLOOD CREATININE INCREASED [None]
  - RENAL DISORDER [None]
  - ASTHENIA [None]
  - BLOOD UREA INCREASED [None]
